FAERS Safety Report 4876151-4 (Version None)
Quarter: 2006Q1

REPORT INFORMATION
  Report Type: 
  Country: None (occurrence: None)
  Receive Date: 20060106
  Receipt Date: 20051222
  Transmission Date: 20060701
  Serious: Yes (Death, Hospitalization)
  Sender: FDA-Public Use
  Company Number: JP_051007814

PATIENT
  Age: 66 Year
  Sex: Male
  Weight: 69 kg

DRUGS (23)
  1. GEMZAR [Suspect]
     Indication: NON-SMALL CELL LUNG CANCER STAGE IIIB
     Dosage: 1700 MG OTHER INTRAVENOUS
     Route: 042
     Dates: start: 20050927, end: 20051004
  2. NAVELBINE [Concomitant]
  3. SODIUM CHLORIDE (SODIUM CHLORIDE0 [Concomitant]
  4. AZASETRON HYDROCHLORIDE           (AZASETRON HYDROCHLORIDE) [Concomitant]
  5. DECADRON [Concomitant]
  6. NEU-UP (NARTOGRASTIM) [Concomitant]
  7. SOLULACT [Concomitant]
  8. SOLDEM3A                 (SEE IMAGE) [Concomitant]
  9. OMEPRAZOLE [Concomitant]
  10. BOSMIN  (EPINEPRHINE HYDROCHLORIDE) [Concomitant]
  11. ALEVIATIN FOR INJECTION (PHENYTOIN SODIUM) [Concomitant]
  12. DOPAMINE HYDROCHLORIDE [Concomitant]
  13. SODIUM BICARBONATE [Concomitant]
  14. AMBROXOL HYDROCHLORIDE          (AMBROXOL HYDROCHLORIDE) [Concomitant]
  15. LANSOPRAZOLE [Concomitant]
  16. UNIPHYL [Concomitant]
  17. CODEINE (CODEINE PHOSPHATE) [Concomitant]
  18. PREDNISOLONE [Concomitant]
  19. ALFAROL (ALFACALCIDOL) [Concomitant]
  20. BAKUMONDOUTO        (HERBAL EXTRACTS NOS) [Concomitant]
  21. BUFFERIN              (ACETYLSALICYLIC ACID, ALUMINIUM  GLYCINATE) [Concomitant]
  22. MAGNESIUM OXIDE        (MAGNESIUM OXIDE) [Concomitant]
  23. NIZORAL [Concomitant]

REACTIONS (8)
  - CARDIO-RESPIRATORY ARREST [None]
  - CONDITION AGGRAVATED [None]
  - DEPRESSED LEVEL OF CONSCIOUSNESS [None]
  - DYSPHORIA [None]
  - FALL [None]
  - PANCREATITIS [None]
  - PERICARDIAL EFFUSION [None]
  - TONIC CONVULSION [None]
